FAERS Safety Report 22537312 (Version 1)
Quarter: 2023Q2

REPORT INFORMATION
  Report Type: Spontaneous
  Country: US (occurrence: None)
  Receive Date: 20230607
  Receipt Date: 20230607
  Transmission Date: 20230721
  Serious: No
  Sender: FDA-Public Use
  Company Number: None

PATIENT
  Age: 22 Year
  Sex: Female

DRUGS (8)
  1. HUMIRA [Suspect]
     Active Substance: ADALIMUMAB
     Indication: Crohn^s disease
     Dosage: OTHER QUANTITY : 40/0.4 MG/ML;?FREQUENCY : WEEKLY;?
     Route: 058
     Dates: start: 20230508
  2. IMURAN [Concomitant]
     Active Substance: AZATHIOPRINE
  3. IRON [Concomitant]
     Active Substance: IRON
  4. VITAMINS [Concomitant]
     Active Substance: VITAMINS
  5. PREDNISONE [Concomitant]
     Active Substance: PREDNISONE
  6. PROBIOTIC DAILY [Concomitant]
  7. VITAMIND H/PTNCY [Concomitant]
  8. TYLENOL [Concomitant]
     Active Substance: ACETAMINOPHEN

REACTIONS (1)
  - Crohn^s disease [None]
